FAERS Safety Report 7783736-4 (Version None)
Quarter: 2011Q3

REPORT INFORMATION
  Report Type: 
  Country: None (occurrence: None)
  Receive Date: 20110928
  Receipt Date: 20110914
  Transmission Date: 20111222
  Serious: Yes (Other)
  Sender: FDA-Public Use
  Company Number: US-WATSON-2011-14073

PATIENT
  Sex: Female

DRUGS (4)
  1. TAMOXIFEN                          /00388702/ [Concomitant]
     Indication: BREAST CANCER
     Dosage: UNK
     Route: 048
     Dates: start: 20080825, end: 20110825
  2. TRELSTAR [Suspect]
     Indication: BREAST CANCER
     Dosage: 3.75MG, UNK
     Route: 030
     Dates: start: 20080829, end: 20110105
  3. BISPHOSPHONATES [Concomitant]
     Indication: PRODUCT USED FOR UNKNOWN INDICATION
  4. NOLVADEX                           /00388701/ [Concomitant]
     Indication: PRODUCT USED FOR UNKNOWN INDICATION
     Dosage: UNK
     Dates: start: 20070101

REACTIONS (2)
  - FRACTURE [None]
  - FALL [None]
